FAERS Safety Report 6404550-8 (Version None)
Quarter: 2009Q4

REPORT INFORMATION
  Report Type: 
  Country: None (occurrence: None)
  Receive Date: 20091016
  Receipt Date: 20091012
  Transmission Date: 20100525
  Serious: Yes (Death, Other)
  Sender: FDA-Public Use
  Company Number: PHHY2009MX04544

PATIENT
  Age: 78 Year
  Sex: Male

DRUGS (2)
  1. STALEVO 100 [Suspect]
     Indication: PARKINSON'S DISEASE
     Dosage: 1.5 DF/ DAY (200/50/12.5 MG)
     Route: 048
     Dates: start: 20070301
  2. GLIBENCLAMIDE [Concomitant]
     Indication: DIABETES MELLITUS

REACTIONS (13)
  - BLOOD GLUCOSE DECREASED [None]
  - BRAIN HYPOXIA [None]
  - BRONCHITIS [None]
  - CARDIO-RESPIRATORY ARREST [None]
  - COMA [None]
  - CONVULSION [None]
  - DYSPHAGIA [None]
  - DYSPNOEA [None]
  - EMPHYSEMA [None]
  - INCREASED UPPER AIRWAY SECRETION [None]
  - PNEUMONIA [None]
  - PULMONARY OEDEMA [None]
  - WEIGHT DECREASED [None]
